FAERS Safety Report 5345022-1 (Version None)
Quarter: 2007Q2

REPORT INFORMATION
  Report Type: 
  Country: None (occurrence: None)
  Receive Date: 20070416
  Receipt Date: 20070102
  Transmission Date: 20071010
  Serious: No
  Sender: FDA-Public Use
  Company Number: 2007SP000011

PATIENT
  Age: 39 Year
  Sex: Female
  Weight: 67.1324 kg

DRUGS (3)
  1. LUNESTA [Suspect]
     Indication: HYPERTONIC BLADDER
     Dosage: SEE IMAGE
     Route: 048
     Dates: start: 20061201, end: 20061201
  2. LUNESTA [Suspect]
     Indication: HYPERTONIC BLADDER
     Dosage: SEE IMAGE
     Route: 048
     Dates: start: 20061226
  3. SUMATRIPTAN SUCCINATE [Concomitant]

REACTIONS (1)
  - MIDDLE INSOMNIA [None]
